FAERS Safety Report 15396704 (Version 1)
Quarter: 2018Q3

REPORT INFORMATION
  Report Type: Spontaneous
  Country: CN (occurrence: CN)
  Receive Date: 20180918
  Receipt Date: 20180918
  Transmission Date: 20181010
  Serious: Yes (Other)
  Sender: FDA-Public Use
  Company Number: CN-PFIZER INC-2018371064

PATIENT
  Age: 45 Year
  Sex: Male

DRUGS (1)
  1. CRIZOTINIB [Suspect]
     Active Substance: CRIZOTINIB
     Indication: MALIGNANT FIBROUS HISTIOCYTOMA
     Dosage: 450 MG, DAILY (QD)
     Route: 048
     Dates: start: 20170123

REACTIONS (2)
  - Bone marrow failure [Unknown]
  - Asthenia [Unknown]
